FAERS Safety Report 4979760-7 (Version None)
Quarter: 2006Q2

REPORT INFORMATION
  Report Type: 
  Country: None (occurrence: None)
  Receive Date: 20060418
  Receipt Date: 20060405
  Transmission Date: 20061013
  Serious: Yes (Hospitalization, Other)
  Sender: FDA-Public Use
  Company Number: 2006031810

PATIENT
  Age: 63 Year
  Sex: Male

DRUGS (7)
  1. NEURONTIN [Suspect]
     Indication: ILL-DEFINED DISORDER
     Dosage: 300 MG
     Dates: start: 19990104
  2. COMBIVENT [Concomitant]
  3. TRAZODONE HCL [Concomitant]
  4. HYDROCODONE BITARTRATE + ACETAMINOPHEN [Concomitant]
  5. TEMAZEPAM [Concomitant]
  6. TORADOL [Concomitant]
  7. CLONAZEPAM [Concomitant]

REACTIONS (13)
  - BLOOD CREATINE PHOSPHOKINASE INCREASED [None]
  - BLOOD PRESSURE INCREASED [None]
  - DEPRESSION SUICIDAL [None]
  - DRUG INTOLERANCE [None]
  - LOSS OF CONSCIOUSNESS [None]
  - MAJOR DEPRESSION [None]
  - MARITAL PROBLEM [None]
  - MULTIPLE DRUG OVERDOSE INTENTIONAL [None]
  - NERVOUSNESS [None]
  - OFF LABEL USE [None]
  - PARTNER STRESS [None]
  - SUICIDAL IDEATION [None]
  - SUICIDE ATTEMPT [None]
